FAERS Safety Report 7001627-3 (Version None)
Quarter: 2010Q3

REPORT INFORMATION
  Report Type: 
  Country: None (occurrence: None)
  Receive Date: 20100917
  Receipt Date: 20100917
  Transmission Date: 20110219
  Serious: Yes (Other)
  Sender: FDA-Public Use
  Company Number: None

PATIENT
  Sex: Female
  Weight: 68.9467 kg

DRUGS (2)
  1. AMILORIDE HYDROCHLORIDE [Suspect]
     Indication: BLOOD POTASSIUM DECREASED
     Dosage: 2 TAB DAILY
     Dates: start: 20100528, end: 20100727
  2. AMILORIDE HYDROCHLORIDE [Suspect]
     Indication: HYPERTENSION
     Dosage: 2 TAB DAILY
     Dates: start: 20100528, end: 20100727

REACTIONS (1)
  - HYPERSENSITIVITY [None]
